FAERS Safety Report 9994089 (Version 1)
Quarter: 2014Q1

REPORT INFORMATION
  Report Type: Spontaneous
  Country: US (occurrence: US)
  Receive Date: 20140310
  Receipt Date: 20140310
  Transmission Date: 20141002
  Serious: No
  Sender: FDA-Public Use
  Company Number: US-AMGEN-USASP2014011505

PATIENT
  Age: 69 Year
  Sex: Female

DRUGS (5)
  1. SENSIPAR [Suspect]
     Indication: HYPERPARATHYROIDISM
     Dosage: 30 MG, QD
     Route: 048
  2. LEVOTHYROXINE [Concomitant]
     Dosage: 125 MUG, UNK
  3. VICTOZA [Concomitant]
  4. RAMIPRIL [Concomitant]
  5. FUROSEMIDE [Concomitant]
     Dosage: 20 TO 40 MG, QD AS NEEDED

REACTIONS (2)
  - Joint swelling [Unknown]
  - Local swelling [Unknown]
